FAERS Safety Report 25245758 (Version 2)
Quarter: 2025Q3

REPORT INFORMATION
  Report Type: Spontaneous
  Country: JP (occurrence: JP)
  Receive Date: 20250428
  Receipt Date: 20250803
  Transmission Date: 20251020
  Serious: Yes (Death, Other)
  Sender: ALEXION PHARMACEUTICALS
  Company Number: JP-ASTRAZENECA-250041047_013120_P_1

PATIENT
  Age: 9 Decade
  Sex: Male
  Weight: 59 kg

DRUGS (2)
  1. DURVALUMAB [Suspect]
     Active Substance: DURVALUMAB
     Indication: Hepatocellular carcinoma
     Dosage: 1500 MILLIGRAM, Q4W
  2. TREMELIMUMAB [Suspect]
     Active Substance: TREMELIMUMAB
     Indication: Hepatocellular carcinoma

REACTIONS (7)
  - Death [Fatal]
  - Immune-mediated hypothyroidism [Unknown]
  - Malaise [Unknown]
  - Decreased appetite [Unknown]
  - Eating disorder symptom [Unknown]
  - Performance status decreased [Unknown]
  - Eastern Cooperative Oncology Group performance status worsened [Unknown]
